FAERS Safety Report 10010620 (Version 1)
Quarter: 2014Q1

REPORT INFORMATION
  Report Type: Spontaneous
  Country: US (occurrence: None)
  Receive Date: 20140312
  Receipt Date: 20140312
  Transmission Date: 20141002
  Serious: Yes (Hospitalization)
  Sender: FDA-Public Use
  Company Number: None

PATIENT
  Age: 45 Year
  Sex: Male
  Weight: 151.9 kg

DRUGS (2)
  1. PASIREOTIDE [Suspect]
     Indication: THYROID CANCER METASTATIC
     Dosage: Q4WKS
     Route: 030
     Dates: start: 20120328, end: 20140305
  2. EVEROLIMUS [Suspect]
     Indication: THYROID CANCER METASTATIC
     Route: 048
     Dates: start: 20120328, end: 201403

REACTIONS (3)
  - Pleural effusion [None]
  - Hypoxia [None]
  - Respiratory disorder [None]
